FAERS Safety Report 7971582-8 (Version None)
Quarter: 2011Q4

REPORT INFORMATION
  Report Type: 
  Country: None (occurrence: None)
  Receive Date: 20111212
  Receipt Date: 20111205
  Transmission Date: 20120403
  Serious: Yes (Hospitalization)
  Sender: FDA-Public Use
  Company Number: US-ABBOTT-11P-163-0880919-00

PATIENT
  Sex: Male

DRUGS (5)
  1. FISH OIL [Concomitant]
     Indication: CARDIAC DISORDER
  2. VESICARE [Concomitant]
     Indication: BENIGN PROSTATIC HYPERPLASIA
  3. AVODART [Concomitant]
     Indication: BENIGN PROSTATIC HYPERPLASIA
  4. LIPITOR [Concomitant]
     Indication: BLOOD CHOLESTEROL INCREASED
  5. HUMIRA [Suspect]
     Indication: PSORIASIS
     Dates: start: 20101001

REACTIONS (6)
  - DRUG DOSE OMISSION [None]
  - PSORIASIS [None]
  - CARDIAC DISORDER [None]
  - PRURITUS [None]
  - CARDIAC STRESS TEST ABNORMAL [None]
  - CORONARY ARTERY OCCLUSION [None]
